FAERS Safety Report 8385150-X (Version None)
Quarter: 2012Q2

REPORT INFORMATION
  Report Type: 
  Country: None (occurrence: None)
  Receive Date: 20120524
  Receipt Date: 20120522
  Transmission Date: 20120825
  Serious: Yes (Other)
  Sender: FDA-Public Use
  Company Number: US-AMGEN-USASP2012032330

PATIENT
  Age: 49 Year
  Sex: Female

DRUGS (4)
  1. PROLIA [Suspect]
     Indication: OSTEOPOROSIS POSTMENOPAUSAL
     Dates: start: 20120522
  2. ROPINIROL [Concomitant]
  3. MAXALT [Concomitant]
  4. MOBIC [Concomitant]

REACTIONS (2)
  - DIZZINESS [None]
  - DRY MOUTH [None]
